FAERS Safety Report 11106091 (Version 1)
Quarter: 2015Q2

REPORT INFORMATION
  Report Type: Spontaneous
  Country: US (occurrence: None)
  Receive Date: 20150511
  Receipt Date: 20150511
  Transmission Date: 20150821
  Serious: Yes (Hospitalization)
  Sender: FDA-Public Use
  Company Number: None

PATIENT
  Age: 58 Year
  Sex: Male
  Weight: 121.11 kg

DRUGS (11)
  1. METOPROLOL [Concomitant]
     Active Substance: METOPROLOL
  2. FAZACLO [Concomitant]
     Active Substance: CLOZAPINE
  3. COLACE [Concomitant]
     Active Substance: DOCUSATE SODIUM
  4. ZOCOR [Concomitant]
     Active Substance: SIMVASTATIN
  5. GLUCOTROL [Concomitant]
     Active Substance: GLIPIZIDE
  6. NORVASC [Concomitant]
     Active Substance: AMLODIPINE BESYLATE
  7. ABILIFY MAINTENNA [Concomitant]
  8. OXCARBAZEPINE. [Suspect]
     Active Substance: OXCARBAZEPINE
     Indication: MOOD ALTERED
     Dosage: 600MG, QHS/BEDTIME, ORAL
     Route: 048
     Dates: end: 20150506
  9. JANUVIA [Concomitant]
     Active Substance: SITAGLIPTIN PHOSPHATE
  10. ABILIFY [Concomitant]
     Active Substance: ARIPIPRAZOLE
  11. LISINOPRIL. [Concomitant]
     Active Substance: LISINOPRIL

REACTIONS (1)
  - Blood sodium decreased [None]

NARRATIVE: CASE EVENT DATE: 20150506
